FAERS Safety Report 24439823 (Version 2)
Quarter: 2024Q4

REPORT INFORMATION
  Report Type: Spontaneous
  Country: US (occurrence: US)
  Receive Date: 20241015
  Receipt Date: 20241022
  Transmission Date: 20250115
  Serious: Yes (Hospitalization)
  Sender: JOHNSON AND JOHNSON
  Company Number: US-JNJFOC-20241029238

PATIENT
  Age: 66 Year
  Sex: Female
  Weight: 56.2 kg

DRUGS (13)
  1. UPTRAVI [Suspect]
     Active Substance: SELEXIPAG
     Indication: Product used for unknown indication
     Route: 048
     Dates: start: 202409
  2. TREPROSTINIL SODIUM [Suspect]
     Active Substance: TREPROSTINIL SODIUM
     Indication: Pulmonary arterial hypertension
     Route: 041
     Dates: end: 20240508
  3. TREPROSTINIL SODIUM [Suspect]
     Active Substance: TREPROSTINIL SODIUM
     Dosage: (SELF FILLED CASSETTE WITH 2.3 ML, PUMP RATE OF 25 MCL PER HOUR),
     Route: 058
     Dates: start: 20240805, end: 202409
  4. DILAUDID [Suspect]
     Active Substance: HYDROMORPHONE HYDROCHLORIDE
     Indication: Pain
     Route: 065
  5. SODIUM CHLORIDE [Concomitant]
     Active Substance: SODIUM CHLORIDE
  6. ATORVASTATIN CALCIUM [Concomitant]
     Active Substance: ATORVASTATIN CALCIUM
  7. METOPROLOL SUCCINATE [Concomitant]
     Active Substance: METOPROLOL SUCCINATE
  8. TRAZODONE HCL [Concomitant]
     Active Substance: TRAZODONE HYDROCHLORIDE
  9. LOSARTAN POTASSIUM [Concomitant]
     Active Substance: LOSARTAN POTASSIUM
  10. OXYGEN [Concomitant]
     Active Substance: OXYGEN
  11. ANASTROZOLE [Concomitant]
     Active Substance: ANASTROZOLE
  12. TADALAFIL [Concomitant]
     Active Substance: TADALAFIL
  13. AMBRISENTAN [Concomitant]
     Active Substance: AMBRISENTAN

REACTIONS (15)
  - Infusion site infection [Unknown]
  - Back pain [Unknown]
  - Headache [Not Recovered/Not Resolved]
  - Medical procedure [Unknown]
  - Nausea [Not Recovered/Not Resolved]
  - Pain [Not Recovered/Not Resolved]
  - Hypophagia [Unknown]
  - Fatigue [Unknown]
  - Lethargy [Unknown]
  - Confusional state [Unknown]
  - Malaise [Unknown]
  - Epistaxis [Unknown]
  - Device dislocation [Unknown]
  - Weight decreased [Unknown]
  - Dizziness [Unknown]

NARRATIVE: CASE EVENT DATE: 20240101
